FAERS Safety Report 14291556 (Version 1)
Quarter: 2017Q4

REPORT INFORMATION
  Report Type: Spontaneous
  Country: US (occurrence: US)
  Receive Date: 20171215
  Receipt Date: 20171215
  Transmission Date: 20180321
  Serious: Yes (Other)
  Sender: FDA-Public Use
  Company Number: US-NOVOPROD-536539

PATIENT
  Age: 80 Year
  Sex: Male
  Weight: 59.86 kg

DRUGS (5)
  1. METFORMIN [Concomitant]
     Active Substance: METFORMIN HYDROCHLORIDE
     Indication: TYPE 2 DIABETES MELLITUS
     Dosage: 1000 MG, BID
     Route: 048
  2. NOVOLOG [Concomitant]
     Active Substance: INSULIN ASPART
     Indication: TYPE 2 DIABETES MELLITUS
     Dosage: LESS THAN 10 UNITS DAILY
     Route: 058
     Dates: start: 2013
  3. LEVEMIR [Suspect]
     Active Substance: INSULIN DETEMIR
     Dosage: 10 U, QD
     Route: 058
     Dates: start: 20170312
  4. LEVEMIR [Suspect]
     Active Substance: INSULIN DETEMIR
     Indication: TYPE 2 DIABETES MELLITUS
     Dosage: 19 U, QD
     Route: 058
     Dates: start: 20170306, end: 20170310
  5. LEVEMIR [Suspect]
     Active Substance: INSULIN DETEMIR
     Dosage: 15 U, QD
     Route: 058
     Dates: start: 20170311, end: 20170311

REACTIONS (2)
  - Hypoglycaemia [Recovered/Resolved]
  - Overdose [Recovered/Resolved]

NARRATIVE: CASE EVENT DATE: 20170306
